FAERS Safety Report 4864470-7 (Version None)
Quarter: 2005Q4

REPORT INFORMATION
  Report Type: 
  Country: None (occurrence: None)
  Receive Date: 20051222
  Receipt Date: 20051217
  Transmission Date: 20060501
  Serious: Yes (Hospitalization, Other)
  Sender: FDA-Public Use
  Company Number: US-ABBOTT-05P-163-0320357-00

PATIENT
  Sex: Female

DRUGS (2)
  1. BIAXIN [Suspect]
     Indication: SINUSITIS
     Dosage: NOT REPORTED
  2. ERYTHROMYCIN [Suspect]
     Indication: NASOPHARYNGITIS
     Dosage: NOT REPORTED

REACTIONS (7)
  - AMNESIA [None]
  - APHASIA [None]
  - COMA [None]
  - DIZZINESS [None]
  - HYPERSENSITIVITY [None]
  - HYPOXIA [None]
  - LOSS OF CONSCIOUSNESS [None]
